FAERS Safety Report 18254527 (Version 1)
Quarter: 2020Q3

REPORT INFORMATION
  Report Type: Spontaneous
  Country: US (occurrence: US)
  Receive Date: 20200910
  Receipt Date: 20200910
  Transmission Date: 20201103
  Serious: No
  Sender: FDA-Public Use
  Company Number: US-TEVA-2020-US-1826626

PATIENT
  Sex: Female

DRUGS (2)
  1. METFORMIN [Suspect]
     Active Substance: METFORMIN HYDROCHLORIDE
     Route: 065
  2. GLIPIZIDE. [Suspect]
     Active Substance: GLIPIZIDE
     Route: 065

REACTIONS (3)
  - Peripheral swelling [Unknown]
  - Blood glucose increased [Unknown]
  - Diarrhoea [Unknown]
